FAERS Safety Report 15947514 (Version 1)
Quarter: 2019Q1

REPORT INFORMATION
  Report Type: Spontaneous
  Country: US (occurrence: US)
  Receive Date: 20190211
  Receipt Date: 20190211
  Transmission Date: 20190417
  Serious: No
  Sender: FDA-Public Use
  Company Number: US-TARO-2018TAR00746

PATIENT
  Sex: Male

DRUGS (1)
  1. MICONAZOLE NITRATE VAGINAL CREAM USP 2% 7 DAY CREAM [Suspect]
     Active Substance: MICONAZOLE NITRATE
     Dosage: UNK, ONCE
     Route: 048
     Dates: start: 20181008, end: 20181008

REACTIONS (2)
  - Accidental exposure to product [Recovered/Resolved]
  - Paraesthesia oral [Not Recovered/Not Resolved]

NARRATIVE: CASE EVENT DATE: 20181008
